FAERS Safety Report 14832862 (Version 6)
Quarter: 2018Q3

REPORT INFORMATION
  Report Type: Report from Study
  Country: CA (occurrence: CA)
  Receive Date: 20180501
  Receipt Date: 20180724
  Transmission Date: 20181010
  Serious: Yes (Hospitalization)
  Sender: FDA-Public Use
  Company Number: PHHY2017CA196020

PATIENT
  Sex: Female

DRUGS (9)
  1. ONDANSETRON [Suspect]
     Active Substance: ONDANSETRON
     Indication: NAUSEA
     Dosage: HALF A PILL TO ONE PILL DAILY
     Route: 048
  2. CORTEL [Suspect]
     Active Substance: TELMISARTAN
     Indication: PRODUCT USED FOR UNKNOWN INDICATION
     Dosage: 30 MG, UNK
     Route: 065
  3. ILARIS [Suspect]
     Active Substance: CANAKINUMAB
     Dosage: 300 MG,  EVERY 8 WEEKS
     Route: 058
     Dates: start: 20180221
  4. ILARIS [Suspect]
     Active Substance: CANAKINUMAB
     Dosage: 300 MG, Q4W
     Route: 058
     Dates: start: 20180613
  5. PREDNISONE. [Concomitant]
     Active Substance: PREDNISONE
     Indication: PRODUCT USED FOR UNKNOWN INDICATION
     Route: 065
  6. ILARIS [Suspect]
     Active Substance: CANAKINUMAB
     Indication: FAMILIAL COLD AUTOINFLAMMATORY SYNDROME
     Dosage: 150 MG, EVERY 8 WEEKS
     Route: 058
     Dates: start: 20170906
  7. ILARIS [Suspect]
     Active Substance: CANAKINUMAB
     Dosage: 300 MG,  EVERY 8 WEEKS
     Route: 058
     Dates: start: 20180418
  8. ONDANSETRON [Suspect]
     Active Substance: ONDANSETRON
     Dosage: ONE TO TWO PILLS DAILY
     Route: 048
  9. ILARIS [Suspect]
     Active Substance: CANAKINUMAB
     Dosage: 150 MG, EVERY 8 WEEKS
     Route: 058
     Dates: start: 20171227

REACTIONS (12)
  - Anxiety [Unknown]
  - Insomnia [Unknown]
  - Headache [Unknown]
  - Familial cold autoinflammatory syndrome [Recovering/Resolving]
  - Fatigue [Unknown]
  - Vomiting [Recovering/Resolving]
  - Diarrhoea [Recovering/Resolving]
  - Nausea [Recovering/Resolving]
  - Nervousness [Unknown]
  - Adrenal disorder [Unknown]
  - Malaise [Unknown]
  - Diarrhoea [Unknown]

NARRATIVE: CASE EVENT DATE: 2017
